FAERS Safety Report 15266226 (Version 1)
Quarter: 2018Q3

REPORT INFORMATION
  Report Type: Spontaneous
  Country: US (occurrence: US)
  Receive Date: 20180724
  Receipt Date: 20180724
  Transmission Date: 20181010
  Serious: Yes (Other)
  Sender: FDA-Public Use
  Company Number: None

PATIENT
  Age: 49 Year
  Sex: Male
  Weight: 56.25 kg

DRUGS (1)
  1. SUBOXONE [Suspect]
     Active Substance: BUPRENORPHINE HYDROCHLORIDE\NALOXONE HYDROCHLORIDE
     Indication: DRUG WITHDRAWAL SYNDROME
     Dosage: ?          QUANTITY:1 SUBLINGUAL FILM;?
     Route: 060

REACTIONS (9)
  - Chills [None]
  - Product container issue [None]
  - Vomiting [None]
  - Feeling abnormal [None]
  - Nausea [None]
  - Rhinorrhoea [None]
  - Disturbance in attention [None]
  - Toxicity to various agents [None]
  - Malaise [None]

NARRATIVE: CASE EVENT DATE: 20180722
